FAERS Safety Report 4348857-7 (Version None)
Quarter: 2004Q1

REPORT INFORMATION
  Report Type: 
  Country: None (occurrence: None)
  Receive Date: 20040325
  Receipt Date: 20040216
  Transmission Date: 20041129
  Serious: No
  Sender: FDA-Public Use
  Company Number: USA040259521

PATIENT
  Age: 82 Year
  Sex: Female
  Weight: 56 kg

DRUGS (1)
  1. FORTEO [Suspect]
     Indication: OSTEOPOROSIS
     Dates: start: 20040212

REACTIONS (7)
  - BONE PAIN [None]
  - CHILLS [None]
  - DIZZINESS [None]
  - MYALGIA [None]
  - PARAESTHESIA [None]
  - PRURITUS [None]
  - PYREXIA [None]
